FAERS Safety Report 7469542-9 (Version None)
Quarter: 2011Q2

REPORT INFORMATION
  Report Type: 
  Country: None (occurrence: None)
  Receive Date: 20110510
  Receipt Date: 20110428
  Transmission Date: 20111010
  Serious: Yes (Hospitalization)
  Sender: FDA-Public Use
  Company Number: PHHY2011US38423

PATIENT
  Sex: Female
  Weight: 78.005 kg

DRUGS (1)
  1. EXJADE [Suspect]
     Dosage: 500 MG, TID
     Route: 048
     Dates: start: 20100416

REACTIONS (1)
  - BONE MARROW FAILURE [None]
